FAERS Safety Report 10621690 (Version 3)
Quarter: 2014Q4

REPORT INFORMATION
  Report Type: Report from Study
  Country: EC (occurrence: EC)
  Receive Date: 20141203
  Receipt Date: 20141209
  Transmission Date: 20150529
  Serious: Yes (Hospitalization, Other)
  Sender: FDA-Public Use
  Company Number: PHHY2014EC153572

PATIENT
  Age: 15 Year
  Sex: Male

DRUGS (2)
  1. EXJADE [Suspect]
     Active Substance: DEFERASIROX
     Dosage: 500 MG, QD
     Route: 048
  2. EXJADE [Suspect]
     Active Substance: DEFERASIROX
     Indication: IRON OVERLOAD
     Dosage: 1000 MG, QD
     Route: 048
     Dates: start: 20140301

REACTIONS (7)
  - Platelet count decreased [Recovering/Resolving]
  - Haematocrit decreased [Not Recovered/Not Resolved]
  - Immune system disorder [Unknown]
  - Noninfective gingivitis [Not Recovered/Not Resolved]
  - Bone marrow failure [Not Recovered/Not Resolved]
  - Petechiae [Recovering/Resolving]
  - Gingival bleeding [Recovered/Resolved]

NARRATIVE: CASE EVENT DATE: 20141107
